FAERS Safety Report 6845585-0 (Version None)
Quarter: 2010Q3

REPORT INFORMATION
  Report Type: 
  Country: None (occurrence: None)
  Receive Date: 20100715
  Receipt Date: 20070827
  Transmission Date: 20110219
  Serious: No
  Sender: FDA-Public Use
  Company Number: US-PFIZER INC-2007072906

PATIENT
  Sex: Male
  Weight: 69.9 kg

DRUGS (5)
  1. CHANTIX [Suspect]
     Indication: SMOKING CESSATION THERAPY
     Dates: start: 20070801, end: 20070801
  2. PROGRAF [Suspect]
     Dates: start: 20070801, end: 20070801
  3. PREDNISONE [Concomitant]
     Indication: CROHN'S DISEASE
  4. METRONIDAZOLE [Concomitant]
  5. VALIUM [Concomitant]

REACTIONS (5)
  - BACK PAIN [None]
  - CONSTIPATION [None]
  - DIZZINESS [None]
  - FALL [None]
  - FLATULENCE [None]
